FAERS Safety Report 9346762 (Version 1)
Quarter: 2013Q2

REPORT INFORMATION
  Report Type: Spontaneous
  Country: US (occurrence: US)
  Receive Date: 20130613
  Receipt Date: 20130613
  Transmission Date: 20140414
  Serious: No
  Sender: FDA-Public Use
  Company Number: US-MYLANLABS-2013S1006237

PATIENT
  Age: 62 Year
  Sex: Male
  Weight: 64.86 kg

DRUGS (1)
  1. CLOPIDOGREL TABLETS USP [Suspect]
     Indication: ISCHAEMIC HEART DISEASE PROPHYLAXIS
     Route: 048
     Dates: start: 201209

REACTIONS (3)
  - Choking [Not Recovered/Not Resolved]
  - Foreign body [Not Recovered/Not Resolved]
  - Dysphagia [Not Recovered/Not Resolved]
